FAERS Safety Report 24214296 (Version 2)
Quarter: 2024Q4

REPORT INFORMATION
  Report Type: Spontaneous
  Country: FR (occurrence: FR)
  Receive Date: 20240815
  Receipt Date: 20241110
  Transmission Date: 20250115
  Serious: Yes (Hospitalization, Other)
  Sender: ALEXION PHARMACEUTICALS
  Company Number: 2024A186342

PATIENT
  Age: 54 Year

DRUGS (14)
  1. QUETIAPINE FUMARATE [Suspect]
     Active Substance: QUETIAPINE FUMARATE
     Indication: Schizophrenia
     Dosage: IN THE EVENING
  2. QUETIAPINE FUMARATE [Suspect]
     Active Substance: QUETIAPINE FUMARATE
     Dosage: 300 MILLIGRAM, UNK, FREQUENCY: UNK
  3. QUETIAPINE FUMARATE [Suspect]
     Active Substance: QUETIAPINE FUMARATE
     Dosage: 700 MILLIGRAM, QD
  4. CLOZAPINE [Suspect]
     Active Substance: CLOZAPINE
     Indication: Schizophrenia
     Dosage: 300 MILLIGRAM, QD
  5. VALPROATE SODIUM [Suspect]
     Active Substance: VALPROATE SODIUM
     Indication: Affective disorder
  6. VALPROATE SODIUM [Suspect]
     Active Substance: VALPROATE SODIUM
     Dosage: 500 MILLIGRAM, UNK, FREQUENCY: UNK
  7. VALPROATE SODIUM [Suspect]
     Active Substance: VALPROATE SODIUM
     Dosage: 500 MILLIGRAM, UNK, FREQUENCY: UNK
  8. SULFIRAM [Suspect]
     Active Substance: SULFIRAM
     Dosage: BETWEEN 12/02/2024 AND 13/05/2024 (DATE UNKNOWN)
  9. OXAZEPAM [Suspect]
     Active Substance: OXAZEPAM
     Dosage: 125 MILLIGRAM, UNK, FREQUENCY: UNK
  10. OXAZEPAM [Suspect]
     Active Substance: OXAZEPAM
     Dosage: 75 MILLIGRAM, UNK, FREQUENCY: UNK
  11. TRIMEPRAZINE [Suspect]
     Active Substance: TRIMEPRAZINE
     Dosage: 10 MILLIGRAM, QD
  12. TRIMEPRAZINE [Suspect]
     Active Substance: TRIMEPRAZINE
     Dosage: 25 MILLIGRAM, QD
  13. PIPOTIAZINE [Suspect]
     Active Substance: PIPOTIAZINE
     Dosage: 10 MILLIGRAM, QD
  14. PIPOTIAZINE [Suspect]
     Active Substance: PIPOTIAZINE
     Dosage: 20 MILLIGRAM, QD

REACTIONS (4)
  - Hepatitis acute [Recovered/Resolved]
  - COVID-19 [Unknown]
  - Hypotonia [Recovered/Resolved]
  - Fall [Recovered/Resolved]
